FAERS Safety Report 9400253 (Version 1)
Quarter: 2013Q3

REPORT INFORMATION
  Report Type: Spontaneous
  Country: JP (occurrence: JP)
  Receive Date: 20130715
  Receipt Date: 20130715
  Transmission Date: 20140515
  Serious: Yes (Other)
  Sender: FDA-Public Use
  Company Number: JP-PFIZER INC-2013204859

PATIENT
  Age: 63 Year
  Sex: Male

DRUGS (4)
  1. CELECOX [Suspect]
     Indication: BACK PAIN
     Dosage: 200 MG DAILY PRN
     Route: 048
     Dates: start: 2013
  2. TS-1 [Concomitant]
     Dosage: UNK
     Route: 048
  3. CISPLATIN [Concomitant]
     Dosage: UNK
  4. LOXONIN [Concomitant]
     Dosage: UNK
     Dates: end: 2013

REACTIONS (3)
  - Renal impairment [Unknown]
  - Blood pressure increased [Unknown]
  - Off label use [Unknown]
